FAERS Safety Report 19041909 (Version 1)
Quarter: 2021Q1

REPORT INFORMATION
  Report Type: Report from Study
  Country: DE (occurrence: DE)
  Receive Date: 20210322
  Receipt Date: 20210322
  Transmission Date: 20210420
  Serious: Yes (Life-Threatening, Hospitalization, Other)
  Sender: FDA-Public Use
  Company Number: DE-SHIRE-DE201922146

PATIENT

DRUGS (26)
  1. TEDUGLUTIDE [Suspect]
     Active Substance: TEDUGLUTIDE
     Dosage: 1.3 MILLIGRAM (0.03 MG KG DAILY DOSE, 7 DOSES PER WEEK), 1X/DAY:QD
     Route: 065
     Dates: start: 20170314, end: 20170911
  2. TEDUGLUTIDE [Suspect]
     Active Substance: TEDUGLUTIDE
     Dosage: 1.3 MILLIGRAM (0.03 MG KG DAILY DOSE, 7 DOSES PER WEEK), 1X/DAY:QD
     Route: 065
     Dates: start: 20170314, end: 20170911
  3. TEDUGLUTIDE [Suspect]
     Active Substance: TEDUGLUTIDE
     Dosage: 1.4 MILLIGRAM (0.03 MG KG DAILY DOSE, 7 DOSES PER WEEK), 1X/DAY:QD
     Route: 065
     Dates: start: 201807, end: 201902
  4. TEDUGLUTIDE [Suspect]
     Active Substance: TEDUGLUTIDE
     Dosage: 1.2 MILLIGRAM, (0.03 MG KG DAILY DOSE, 7 DOSES PER WEEK)1X/DAY:QD
     Route: 065
     Dates: start: 201905, end: 201907
  5. TEDUGLUTIDE [Suspect]
     Active Substance: TEDUGLUTIDE
     Indication: SHORT-BOWEL SYNDROME
     Dosage: 2.5 MILLIGRAM ((0.05 MG KG DAILY DOSE, 7 DOSES PER WEEK), 1X/DAY:QD
     Route: 065
     Dates: start: 20160831, end: 20170224
  6. TEDUGLUTIDE [Suspect]
     Active Substance: TEDUGLUTIDE
     Dosage: 1.4 MILLIGRAM (0.03 MG KG DAILY DOSE, 7 DOSES PER WEEK), 1X/DAY:QD
     Route: 065
     Dates: start: 201807, end: 201902
  7. TEDUGLUTIDE [Suspect]
     Active Substance: TEDUGLUTIDE
     Dosage: 1.4 MILLIGRAM (0.03 MG KG DAILY DOSE, 7 DOSES PER WEEK), 1X/DAY:QD
     Route: 065
     Dates: start: 201807, end: 201902
  8. OPIUM TINCTURE [Concomitant]
     Active Substance: MORPHINE
     Indication: FUNCTIONAL GASTROINTESTINAL DISORDER
  9. IMIPENEM [Concomitant]
     Active Substance: IMIPENEM
     Indication: ATYPICAL PNEUMONIA
  10. TEDUGLUTIDE [Suspect]
     Active Substance: TEDUGLUTIDE
     Indication: SHORT-BOWEL SYNDROME
     Dosage: 2.5 MILLIGRAM ((0.05 MG KG DAILY DOSE, 7 DOSES PER WEEK), 1X/DAY:QD
     Route: 065
     Dates: start: 20160831, end: 20170224
  11. TEDUGLUTIDE [Suspect]
     Active Substance: TEDUGLUTIDE
     Dosage: 1.4 MILLIGRAM (0.03 MG KG DAILY DOSE, 7 DOSES PER WEEK), 1X/DAY:QD
     Route: 065
     Dates: start: 201807, end: 201902
  12. CEFTRIAXONE. [Concomitant]
     Active Substance: CEFTRIAXONE
     Indication: URINARY TRACT INFECTION
  13. TEDUGLUTIDE [Suspect]
     Active Substance: TEDUGLUTIDE
     Dosage: 1.3 MILLIGRAM (0.03 MG KG DAILY DOSE, 7 DOSES PER WEEK), 1X/DAY:QD
     Route: 065
     Dates: start: 20170314, end: 20170911
  14. TEDUGLUTIDE [Suspect]
     Active Substance: TEDUGLUTIDE
     Dosage: 1.2 MILLIGRAM, (0.03 MG KG DAILY DOSE, 7 DOSES PER WEEK)1X/DAY:QD
     Route: 065
     Dates: start: 201905, end: 201907
  15. TEDUGLUTIDE [Suspect]
     Active Substance: TEDUGLUTIDE
     Dosage: 1.2 MILLIGRAM, (0.03 MG KG DAILY DOSE, 7 DOSES PER WEEK)1X/DAY:QD
     Route: 065
     Dates: start: 201905, end: 201907
  16. TEDUGLUTIDE [Suspect]
     Active Substance: TEDUGLUTIDE
     Dosage: 1.2 MILLIGRAM (0.03 MG KG DAILY DOSE, 7 DOSES PER WEEK), 1X/DAY:QD
     Route: 065
     Dates: start: 20171027, end: 201807
  17. TEDUGLUTIDE [Suspect]
     Active Substance: TEDUGLUTIDE
     Dosage: 1.2 MILLIGRAM (0.03 MG KG DAILY DOSE, 7 DOSES PER WEEK), 1X/DAY:QD
     Route: 065
     Dates: start: 20171027, end: 201807
  18. VITAMIN B12 [Concomitant]
     Active Substance: CYANOCOBALAMIN
     Indication: VITAMIN SUPPLEMENTATION
  19. TEDUGLUTIDE [Suspect]
     Active Substance: TEDUGLUTIDE
     Indication: SHORT-BOWEL SYNDROME
     Dosage: 2.5 MILLIGRAM ((0.05 MG KG DAILY DOSE, 7 DOSES PER WEEK), 1X/DAY:QD
     Route: 065
     Dates: start: 20160831, end: 20170224
  20. TEDUGLUTIDE [Suspect]
     Active Substance: TEDUGLUTIDE
     Indication: SHORT-BOWEL SYNDROME
     Dosage: 2.5 MILLIGRAM ((0.05 MG KG DAILY DOSE, 7 DOSES PER WEEK), 1X/DAY:QD
     Route: 065
     Dates: start: 20160831, end: 20170224
  21. TEDUGLUTIDE [Suspect]
     Active Substance: TEDUGLUTIDE
     Dosage: 1.2 MILLIGRAM (0.03 MG KG DAILY DOSE, 7 DOSES PER WEEK), 1X/DAY:QD
     Route: 065
     Dates: start: 20171027, end: 201807
  22. CASPOFUNGIN [Concomitant]
     Active Substance: CASPOFUNGIN
     Indication: FUNGAL SEPSIS
  23. DIFLUCAN [Concomitant]
     Active Substance: FLUCONAZOLE
     Indication: FUNGAL SEPSIS
  24. TEDUGLUTIDE [Suspect]
     Active Substance: TEDUGLUTIDE
     Dosage: 1.2 MILLIGRAM, (0.03 MG KG DAILY DOSE, 7 DOSES PER WEEK)1X/DAY:QD
     Route: 065
     Dates: start: 201905, end: 201907
  25. TEDUGLUTIDE [Suspect]
     Active Substance: TEDUGLUTIDE
     Dosage: 1.3 MILLIGRAM (0.03 MG KG DAILY DOSE, 7 DOSES PER WEEK), 1X/DAY:QD
     Route: 065
     Dates: start: 20170314, end: 20170911
  26. TEDUGLUTIDE [Suspect]
     Active Substance: TEDUGLUTIDE
     Dosage: 1.2 MILLIGRAM (0.03 MG KG DAILY DOSE, 7 DOSES PER WEEK), 1X/DAY:QD
     Route: 065
     Dates: start: 20171027, end: 201807

REACTIONS (6)
  - Hypokalaemia [Recovered/Resolved]
  - Dehydration [Recovered/Resolved]
  - Fungal sepsis [Recovered/Resolved]
  - Urinary tract infection [Unknown]
  - Atypical pneumonia [Unknown]
  - Anaemia [Recovered/Resolved]

NARRATIVE: CASE EVENT DATE: 20190613
